FAERS Safety Report 9886594 (Version 1)
Quarter: 2014Q1

REPORT INFORMATION
  Report Type: Spontaneous
  Country: US (occurrence: US)
  Receive Date: 20140210
  Receipt Date: 20140210
  Transmission Date: 20141002
  Serious: No
  Sender: FDA-Public Use
  Company Number: US-TEVA-461061USA

PATIENT
  Sex: Female
  Weight: 83.99 kg

DRUGS (5)
  1. PROAIR HFA [Suspect]
     Indication: CHRONIC OBSTRUCTIVE PULMONARY DISEASE
     Route: 055
     Dates: start: 201401
  2. ADVAIR [Concomitant]
  3. SPIRIVA [Concomitant]
  4. BYSTOLIC [Concomitant]
     Indication: HYPERTENSION
  5. CEPHALEXIN [Concomitant]
     Indication: CHRONIC OBSTRUCTIVE PULMONARY DISEASE
     Dosage: 250 MILLIGRAM DAILY;

REACTIONS (5)
  - Cough [Unknown]
  - Hypoaesthesia oral [Unknown]
  - Hyperhidrosis [Unknown]
  - Feeling hot [Unknown]
  - Adverse reaction [Unknown]
